FAERS Safety Report 18033368 (Version 2)
Quarter: 2020Q3

REPORT INFORMATION
  Report Type: Spontaneous
  Country: JP (occurrence: JP)
  Receive Date: 20200716
  Receipt Date: 20200804
  Transmission Date: 20201103
  Serious: Yes (Other)
  Sender: FDA-Public Use
  Company Number: JP-PFIZER INC-2020256446

PATIENT
  Age: 72 Year
  Sex: Female

DRUGS (1)
  1. TOVIAZ [Suspect]
     Active Substance: FESOTERODINE FUMARATE
     Dosage: 4 MG, 1X/DAY
     Route: 048
     Dates: start: 20200430, end: 20200501

REACTIONS (2)
  - Dysuria [Unknown]
  - Urinary retention [Recovered/Resolved]

NARRATIVE: CASE EVENT DATE: 2020
